FAERS Safety Report 6652519-0 (Version None)
Quarter: 2010Q1

REPORT INFORMATION
  Report Type: 
  Country: None (occurrence: None)
  Receive Date: 20100325
  Receipt Date: 20100325
  Transmission Date: 20100710
  Serious: Yes (Hospitalization)
  Sender: FDA-Public Use
  Company Number: None

PATIENT
  Age: 49 Year
  Sex: Male
  Weight: 117.5 kg

DRUGS (1)
  1. TRAZODONE [Suspect]
     Indication: DEPRESSION
     Dosage: 200 MG HS PO
     Route: 048
     Dates: start: 20090930

REACTIONS (5)
  - ANXIETY [None]
  - BLOOD POTASSIUM DECREASED [None]
  - DRUG ABUSE [None]
  - ELECTROCARDIOGRAM QT PROLONGED [None]
  - OVERDOSE [None]
